FAERS Safety Report 8166378-0 (Version None)
Quarter: 2012Q1

REPORT INFORMATION
  Report Type: 
  Country: None (occurrence: None)
  Receive Date: 20120227
  Receipt Date: 20110629
  Transmission Date: 20120608
  Serious: No
  Sender: FDA-Public Use
  Company Number: US-MYLANLABS-2011S1013591

PATIENT
  Age: 31 Year
  Sex: Female
  Weight: 60.78 kg

DRUGS (2)
  1. AMNESTEEM [Suspect]
     Indication: ACNE
     Route: 048
     Dates: start: 20110615
  2. ORAL CONTRACEPTIVE NOS [Concomitant]

REACTIONS (3)
  - PRURITUS [None]
  - DRY SKIN [None]
  - SKIN DISORDER [None]
